FAERS Safety Report 8588497-7 (Version None)
Quarter: 2012Q3

REPORT INFORMATION
  Report Type: 
  Country: None (occurrence: None)
  Receive Date: 20120813
  Receipt Date: 20120730
  Transmission Date: 20120928
  Serious: Yes (Hospitalization, Other)
  Sender: FDA-Public Use
  Company Number: FR-ASTRAZENECA-2012SE55075

PATIENT
  Age: 66 Year
  Sex: Female

DRUGS (8)
  1. XYLOCAINE [Suspect]
     Indication: LOCAL ANAESTHESIA
     Route: 048
     Dates: start: 20111107, end: 20111107
  2. KEPPRA [Concomitant]
     Dates: start: 20111101
  3. KEPPRA [Concomitant]
     Route: 042
  4. XYLOCAINE [Suspect]
     Indication: LOCAL ANAESTHESIA
     Route: 049
     Dates: start: 20111107, end: 20111107
  5. MICARDIS HCT [Concomitant]
  6. GLUCOPHAGE [Concomitant]
  7. AMARYL [Concomitant]
  8. XYLOCAINE [Suspect]
     Dosage: XILOCAINE NEBULIZER, 1 DOSAGE FORM ONCE/SINGLE ADMINISTRATION
     Route: 048
     Dates: start: 20111107, end: 20111107

REACTIONS (5)
  - CLONIC CONVULSION [None]
  - HYPERHIDROSIS [None]
  - LOSS OF CONSCIOUSNESS [None]
  - NERVOUS SYSTEM DISORDER [None]
  - HYPERTENSIVE CRISIS [None]
